FAERS Safety Report 9431791 (Version 2)
Quarter: 2013Q3

REPORT INFORMATION
  Report Type: Spontaneous
  Country: US (occurrence: None)
  Receive Date: 20130726
  Receipt Date: 20130913
  Transmission Date: 20140515
  Serious: Yes (Hospitalization)
  Sender: FDA-Public Use
  Company Number: ACO_37498_2013

PATIENT
  Age: 61 Year
  Sex: Female
  Weight: 95.2 kg

DRUGS (2)
  1. AMPYRA [Suspect]
     Indication: GAIT DISTURBANCE
     Route: 048
     Dates: start: 20130501, end: 20130701
  2. COPAXONE (FLATIRAMER ACETATE) [Concomitant]
     Indication: MULTIPLE SCLEROSIS

REACTIONS (2)
  - Myocardial infarction [None]
  - Fall [None]
